FAERS Safety Report 9503504 (Version 2)
Quarter: 2013Q3

REPORT INFORMATION
  Report Type: Spontaneous
  Country: GB (occurrence: GB)
  Receive Date: 20130906
  Receipt Date: 20130923
  Transmission Date: 20140515
  Serious: Yes (Other)
  Sender: FDA-Public Use
  Company Number: GB-PFIZER INC-2013254061

PATIENT
  Sex: Male

DRUGS (2)
  1. TRANEXAMIC ACID [Suspect]
     Indication: HAEMORRHAGE PROPHYLAXIS
     Dosage: 12G OVER 6 HOURS
     Route: 042
  2. PROPOFOL [Concomitant]
     Dosage: UNK

REACTIONS (3)
  - Cerebrovascular accident [Unknown]
  - Overdose [Recovered/Resolved]
  - Convulsion [Recovered/Resolved]
